FAERS Safety Report 25741638 (Version 1)
Quarter: 2025Q3

REPORT INFORMATION
  Report Type: Spontaneous
  Country: US (occurrence: US)
  Receive Date: 20250829
  Receipt Date: 20250829
  Transmission Date: 20251021
  Serious: No
  Sender: UPSHER SMITH LABORATORIES
  Company Number: US-UPSHER-SMITH LABORATORIES, LLC-2024USL00235

PATIENT
  Age: 71 Year
  Sex: Female
  Weight: 51.256 kg

DRUGS (10)
  1. KLOR-CON [Suspect]
     Active Substance: POTASSIUM CHLORIDE
     Indication: Blood test abnormal
     Route: 048
  2. KLOR-CON [Suspect]
     Active Substance: POTASSIUM CHLORIDE
     Route: 048
  3. ATENOLOL [Concomitant]
     Active Substance: ATENOLOL
  4. ANASTROZOLE [Concomitant]
     Active Substance: ANASTROZOLE
     Indication: Neoplasm malignant
  5. ATORVASTATIN [Concomitant]
     Active Substance: ATORVASTATIN
  6. ASPIRIN [Concomitant]
     Active Substance: ASPIRIN
  7. RETINOL [Concomitant]
     Active Substance: RETINOL
  8. BIOTIN [Concomitant]
     Active Substance: BIOTIN
  9. MULTIVITAMIN [ASCORBIC ACID;NICOTINAMIDE;RETINOL;RIBOFLAVIN;THIAMINE;V [Concomitant]
     Indication: Dysphagia
  10. VIACTIV [CALCIUM;COLECALCIFEROL] [Concomitant]

REACTIONS (3)
  - Muscle spasms [Not Recovered/Not Resolved]
  - Muscle twitching [Not Recovered/Not Resolved]
  - Therapeutic product effect incomplete [Not Recovered/Not Resolved]

NARRATIVE: CASE EVENT DATE: 20240301
